FAERS Safety Report 6296115-6 (Version None)
Quarter: 2009Q3

REPORT INFORMATION
  Report Type: 
  Country: None (occurrence: None)
  Receive Date: 20090731
  Receipt Date: 20090717
  Transmission Date: 20100115
  Serious: Yes (Hospitalization)
  Sender: FDA-Public Use
  Company Number: 1000006661

PATIENT
  Age: 87 Year
  Sex: Female

DRUGS (8)
  1. MEMANTINE HCL [Suspect]
     Indication: DEMENTIA ALZHEIMER'S TYPE
     Dosage: 20 MG (20 MG,  1 IN 1 D), ORAL
     Route: 048
  2. CONTRAMAL (CAPSULES) [Suspect]
     Indication: PAIN
     Dosage: 100 MG (50 MG, 2 IN 1 D), ORAL
     Route: 048
     Dates: end: 20090207
  3. EQUANIL [Suspect]
     Dosage: 200 MG (200 MG,1 IN 1 D),ORAL
  4. NEURONTIN [Concomitant]
     Dosage: 900 MG (300 MG,3 IN 1 D), ORAL
     Route: 048
  5. ARICEPT [Suspect]
     Indication: DEMENTIA ALZHEIMER'S TYPE
     Dosage: 10 MG (10 MG,  1 IN 1 D), ORAL
     Route: 048
  6. KARDEGIC [Concomitant]
  7. DAFALGAN (CAPSULES) [Concomitant]
  8. CORDARONE [Concomitant]

REACTIONS (8)
  - COGNITIVE DISORDER [None]
  - COMA [None]
  - CONFUSIONAL STATE [None]
  - FALL [None]
  - MIOSIS [None]
  - MOVEMENT DISORDER [None]
  - RESPIRATORY DISORDER [None]
  - THERAPEUTIC AGENT TOXICITY [None]
